FAERS Safety Report 4301926-X (Version None)
Quarter: 2004Q1

REPORT INFORMATION
  Report Type: 
  Country: None (occurrence: None)
  Receive Date: 20040220
  Receipt Date: 20040206
  Transmission Date: 20041129
  Serious: Yes (Hospitalization)
  Sender: FDA-Public Use
  Company Number: CEL-2003-04228-SLO

PATIENT
  Age: 10 Year
  Sex: Male
  Weight: 28.2 kg

DRUGS (1)
  1. EQUASYM 20MG (METHYLPHENIDATE HYDROCHLORIDE) [Suspect]
     Indication: ATTENTION DEFICIT/HYPERACTIVITY DISORDER
     Dosage: 20 MG (20 MG, DAILY), PO
     Route: 048
     Dates: end: 20030701

REACTIONS (5)
  - ALANINE AMINOTRANSFERASE INCREASED [None]
  - ASPARTATE AMINOTRANSFERASE INCREASED [None]
  - BLOOD CREATINE PHOSPHOKINASE INCREASED [None]
  - BLOOD LACTATE DEHYDROGENASE INCREASED [None]
  - VIRAL MYOSITIS [None]
